FAERS Safety Report 17850028 (Version 1)
Quarter: 2020Q2

REPORT INFORMATION
  Report Type: Spontaneous
  Country: IT (occurrence: IT)
  Receive Date: 20200602
  Receipt Date: 20200602
  Transmission Date: 20200714
  Serious: Yes (Life-Threatening)
  Sender: FDA-Public Use
  Company Number: NVSC2020IT147977

PATIENT
  Age: 42 Year
  Sex: Male

DRUGS (2)
  1. VOLTAREN [Concomitant]
     Active Substance: DICLOFENAC SODIUM
     Indication: PRODUCT USED FOR UNKNOWN INDICATION
     Dosage: 75 MG
     Route: 030
     Dates: start: 20200211, end: 20200211
  2. CEFTRIAXONE. [Suspect]
     Active Substance: CEFTRIAXONE
     Indication: EPIDIDYMITIS
     Dosage: 1 G, TOTAL
     Route: 065
     Dates: start: 20200211, end: 20200211

REACTIONS (3)
  - Anaphylactic shock [Recovering/Resolving]
  - Nausea [Recovering/Resolving]
  - Tachycardia [Recovering/Resolving]

NARRATIVE: CASE EVENT DATE: 20200211
